FAERS Safety Report 15339467 (Version 2)
Quarter: 2018Q3

REPORT INFORMATION
  Report Type: Report from Study
  Country: GB (occurrence: GB)
  Receive Date: 20180831
  Receipt Date: 20180917
  Transmission Date: 20181010
  Serious: Yes (Other)
  Sender: FDA-Public Use
  Company Number: PHHY2018GB081984

PATIENT
  Age: 41 Year
  Sex: Female

DRUGS (1)
  1. COSENTYX [Suspect]
     Active Substance: SECUKINUMAB
     Indication: PSORIASIS
     Dosage: 150 MG, QMO
     Route: 058
     Dates: start: 20180814

REACTIONS (4)
  - Device malfunction [Unknown]
  - Sputum discoloured [Unknown]
  - Feeling of body temperature change [Unknown]
  - Cough [Unknown]

NARRATIVE: CASE EVENT DATE: 20180904
